FAERS Safety Report 7810805-2 (Version None)
Quarter: 2011Q4

REPORT INFORMATION
  Report Type: 
  Country: None (occurrence: None)
  Receive Date: 20111012
  Receipt Date: 20111012
  Transmission Date: 20120403
  Serious: Yes (Other)
  Sender: FDA-Public Use
  Company Number: None

PATIENT
  Age: 81 Year
  Sex: Female
  Weight: 72 kg

DRUGS (2)
  1. RITUXAN [Suspect]
     Dosage: RITUXAN WEEKLY IVSS; RITUXAN WEEKLY IVSS
     Dates: start: 20110720
  2. RITUXAN [Suspect]
     Dosage: RITUXAN WEEKLY IVSS; RITUXAN WEEKLY IVSS
     Dates: start: 20110727

REACTIONS (2)
  - CONVULSION [None]
  - PROGRESSIVE MULTIFOCAL LEUKOENCEPHALOPATHY [None]
